FAERS Safety Report 11640295 (Version 1)
Quarter: 2015Q4

REPORT INFORMATION
  Report Type: Spontaneous
  Country: US (occurrence: None)
  Receive Date: 20151016
  Receipt Date: 20151016
  Transmission Date: 20160304
  Serious: No
  Sender: FDA-Public Use
  Company Number: None

PATIENT
  Age: 50 Year
  Sex: Female
  Weight: 59.88 kg

DRUGS (5)
  1. TAMAZEPAM [Concomitant]
     Active Substance: TEMAZEPAM
  2. SYNTHROID [Concomitant]
     Active Substance: LEVOTHYROXINE SODIUM
  3. ONCE A DAY MULTI-VITAMIN [Concomitant]
  4. FISH OIL [Concomitant]
     Active Substance: FISH OIL
  5. RESTASIS [Suspect]
     Active Substance: CYCLOSPORINE
     Indication: DRY EYE
     Route: 047
     Dates: start: 20150316, end: 20150825

REACTIONS (3)
  - Ocular hyperaemia [None]
  - Eye pain [None]
  - Eye irritation [None]

NARRATIVE: CASE EVENT DATE: 20150824
